FAERS Safety Report 18364681 (Version 7)
Quarter: 2022Q2

REPORT INFORMATION
  Report Type: Spontaneous
  Country: US (occurrence: US)
  Receive Date: 20201009
  Receipt Date: 20220503
  Transmission Date: 20220721
  Serious: No
  Sender: FDA-Public Use
  Company Number: US-PFIZER INC-2020386013

PATIENT
  Age: 71 Year
  Sex: Female

DRUGS (1)
  1. NICOTROL [Suspect]
     Active Substance: NICOTINE
     Indication: Smoking cessation therapy
     Dosage: 10 MG (QUANTITY FOR 90 DAYS: 168 CARTRIDGES)
     Dates: start: 2007

REACTIONS (5)
  - Restlessness [Unknown]
  - Chronic obstructive pulmonary disease [Unknown]
  - Hypoacusis [Unknown]
  - Intentional product misuse [Unknown]
  - Expired product administered [Unknown]
